FAERS Safety Report 7916212-6 (Version None)
Quarter: 2011Q4

REPORT INFORMATION
  Report Type: 
  Country: None (occurrence: None)
  Receive Date: 20111116
  Receipt Date: 20111104
  Transmission Date: 20120403
  Serious: No
  Sender: FDA-Public Use
  Company Number: US-BIOGENIDEC-2011BI029131

PATIENT
  Age: 65 Year
  Sex: Female

DRUGS (1)
  1. TYSABRI [Suspect]
     Indication: MULTIPLE SCLEROSIS
     Route: 042
     Dates: start: 20110729

REACTIONS (15)
  - FEELING ABNORMAL [None]
  - EYE SWELLING [None]
  - OSCILLOPSIA [None]
  - OCULAR DISCOMFORT [None]
  - MYALGIA [None]
  - ASTHENOPIA [None]
  - BLINDNESS TRANSIENT [None]
  - VISION BLURRED [None]
  - PAIN [None]
  - SLEEP DISORDER [None]
  - BACK INJURY [None]
  - METAMORPHOPSIA [None]
  - FOREIGN BODY SENSATION IN EYES [None]
  - SENSORY DISTURBANCE [None]
  - HEADACHE [None]
